FAERS Safety Report 11163566 (Version 1)
Quarter: 2015Q2

REPORT INFORMATION
  Report Type: Spontaneous
  Country: KR (occurrence: None)
  Receive Date: 20150602
  Receipt Date: 20150602
  Transmission Date: 20150821
  Serious: Yes (Life-Threatening)
  Sender: FDA-Public Use
  Company Number: INT_00780_2015

PATIENT

DRUGS (2)
  1. CYCLOPHOSPHAMIDE. [Suspect]
     Active Substance: CYCLOPHOSPHAMIDE
     Indication: BLADDER TRANSITIONAL CELL CARCINOMA STAGE I
     Dosage: DAYS 1-7 IN 3-WEEK SCHEDULE
  2. PACLITAXEL. [Suspect]
     Active Substance: PACLITAXEL
     Indication: BLADDER TRANSITIONAL CELL CARCINOMA STAGE I
     Dosage: OVER 3 HOURS ON DAY 1
     Route: 042

REACTIONS (2)
  - Azotaemia [None]
  - Urosepsis [None]
